FAERS Safety Report 8085468-4 (Version None)
Quarter: 2012Q1

REPORT INFORMATION
  Report Type: 
  Country: None (occurrence: None)
  Receive Date: 20120128
  Receipt Date: 20110411
  Transmission Date: 20120608
  Serious: No
  Sender: FDA-Public Use
  Company Number: US-ABBOTT-11P-163-0706049-00

PATIENT
  Age: 34 Year
  Sex: Female

DRUGS (2)
  1. HUMIRA [Suspect]
     Indication: PSORIATIC ARTHROPATHY
     Dates: start: 20100801
  2. MOTRIN [Concomitant]
     Indication: PAIN

REACTIONS (10)
  - DYSGEUSIA [None]
  - DEVICE MALFUNCTION [None]
  - ARTHRALGIA [None]
  - INCORRECT DOSE ADMINISTERED [None]
  - PAIN IN EXTREMITY [None]
  - INJECTION SITE PARAESTHESIA [None]
  - INJECTION SITE HAEMATOMA [None]
  - INJECTION SITE MACULE [None]
  - INJECTION SITE NODULE [None]
  - RESTLESS LEGS SYNDROME [None]
